FAERS Safety Report 25553870 (Version 1)
Quarter: 2025Q3

REPORT INFORMATION
  Report Type: Spontaneous
  Country: US (occurrence: None)
  Receive Date: 20250714
  Receipt Date: 20250714
  Transmission Date: 20251020
  Serious: Yes (Hospitalization)
  Sender: FDA-CTU
  Company Number: None

PATIENT
  Age: 58 Year
  Sex: Male

DRUGS (1)
  1. GLEOSTINE [Suspect]
     Active Substance: LOMUSTINE
     Indication: Brain neoplasm malignant
     Route: 048
     Dates: start: 20250325

REACTIONS (2)
  - Cerebrospinal fluid drainage [None]
  - Incision site discharge [None]

NARRATIVE: CASE EVENT DATE: 20250423
